FAERS Safety Report 5827712-7 (Version None)
Quarter: 2008Q3

REPORT INFORMATION
  Report Type: 
  Country: None (occurrence: None)
  Receive Date: 20080730
  Receipt Date: 20080723
  Transmission Date: 20090109
  Serious: Yes (Life-Threatening, Other)
  Sender: FDA-Public Use
  Company Number: TR-ABBOTT-08P-161-0465497-00

PATIENT
  Sex: Male

DRUGS (1)
  1. SEVORANE [Suspect]
     Indication: EYE OPERATION

REACTIONS (2)
  - DRUG INEFFECTIVE [None]
  - UNWANTED AWARENESS DURING ANAESTHESIA [None]
